FAERS Safety Report 23178291 (Version 1)
Quarter: 2023Q4

REPORT INFORMATION
  Report Type: Spontaneous
  Country: US (occurrence: US)
  Receive Date: 20231113
  Receipt Date: 20231113
  Transmission Date: 20240105
  Serious: No
  Sender: FDA-Public Use
  Company Number: US-BAYER-2023A160914

PATIENT
  Age: 35 Year
  Sex: Male

DRUGS (2)
  1. KOVALTRY [Suspect]
     Active Substance: ANTIHEMOPHILIC FACTOR, HUMAN RECOMBINANT
     Dosage: 5905 IU
  2. KOVALTRY [Suspect]
     Active Substance: ANTIHEMOPHILIC FACTOR, HUMAN RECOMBINANT
     Dosage: 1 DF, A DOSE THE NEXT MORNING

REACTIONS (2)
  - Injury [None]
  - Pain [None]

NARRATIVE: CASE EVENT DATE: 20231023
